FAERS Safety Report 7645488-8 (Version None)
Quarter: 2011Q3

REPORT INFORMATION
  Report Type: 
  Country: None (occurrence: None)
  Receive Date: 20110729
  Receipt Date: 20110720
  Transmission Date: 20111222
  Serious: Yes (Death, Other)
  Sender: FDA-Public Use
  Company Number: AU-PURDUE-USA-2011-0072273

PATIENT
  Age: 30 Year
  Sex: Female

DRUGS (5)
  1. METHADONE HYDROCHLORIDE [Suspect]
     Indication: PRODUCT USED FOR UNKNOWN INDICATION
  2. BUPRENORPHINE (SIMILAR TO NDA 21-306) [Suspect]
     Indication: PRODUCT USED FOR UNKNOWN INDICATION
  3. OXYCODONE HCL [Suspect]
     Indication: PRODUCT USED FOR UNKNOWN INDICATION
  4. DIAZEPAM [Suspect]
     Indication: PRODUCT USED FOR UNKNOWN INDICATION
  5. METHAMPHETAMINE HYDROCHLORIDE [Suspect]
     Indication: PRODUCT USED FOR UNKNOWN INDICATION

REACTIONS (7)
  - DRUG DEPENDENCE [None]
  - MYOCARDIAL INFARCTION [None]
  - MYOCARDIAL ISCHAEMIA [None]
  - HEPATITIS C [None]
  - ARTERIOSCLEROSIS [None]
  - ACCIDENTAL POISONING [None]
  - PULMONARY CONGESTION [None]
